FAERS Safety Report 9479788 (Version 1)
Quarter: 2013Q3

REPORT INFORMATION
  Report Type: Spontaneous
  Country: US (occurrence: US)
  Receive Date: 20130828
  Receipt Date: 20130828
  Transmission Date: 20140515
  Serious: Yes (Hospitalization)
  Sender: FDA-Public Use
  Company Number: US-AMGEN-KDL050824

PATIENT
  Age: 38 Year
  Sex: Female

DRUGS (3)
  1. ENBREL [Suspect]
     Indication: RHEUMATOID ARTHRITIS
     Dosage: 25 MG, 2 TIMES/WK
     Route: 058
     Dates: start: 20021205
  2. LEFLUNOMIDE [Concomitant]
  3. HYDROXYCHLOROQUINE PHOSPHATE [Concomitant]

REACTIONS (7)
  - Dermal cyst [Unknown]
  - Tooth infection [Unknown]
  - Bronchitis [Unknown]
  - Urticaria [Unknown]
  - Pyrexia [Unknown]
  - Feeling abnormal [Unknown]
  - Injection site bruising [Unknown]
